FAERS Safety Report 10174700 (Version 1)
Quarter: 2014Q2

REPORT INFORMATION
  Report Type: Spontaneous
  Country: US (occurrence: None)
  Receive Date: 20140416
  Receipt Date: 20140416
  Transmission Date: 20141212
  Serious: Yes (Hospitalization)
  Sender: FDA-Public Use
  Company Number: 163-POMAL-13113834

PATIENT
  Age: 85 Year
  Sex: Male

DRUGS (1)
  1. POMALYST [Suspect]
     Indication: MYELODYSPLASTIC SYNDROME
     Dosage: 1 MG, 28 IN 28 D, PO
     Route: 048
     Dates: start: 20130625

REACTIONS (1)
  - Pyrexia [None]
